FAERS Safety Report 7944055-6 (Version None)
Quarter: 2011Q4

REPORT INFORMATION
  Report Type: 
  Country: None (occurrence: None)
  Receive Date: 20111128
  Receipt Date: 20111115
  Transmission Date: 20120403
  Serious: Yes (Life-Threatening, Hospitalization)
  Sender: FDA-Public Use
  Company Number: FR-GILEAD-2008-0017571

PATIENT
  Sex: Male

DRUGS (8)
  1. MAALOX                             /00082501/ [Concomitant]
  2. KALETRA [Suspect]
     Indication: HIV INFECTION
     Route: 048
     Dates: start: 20080205, end: 20080228
  3. PRIMPERAN TAB [Concomitant]
  4. GAVISCON                           /00237601/ [Concomitant]
  5. ACETAMINOPHEN [Concomitant]
  6. PPI [Concomitant]
  7. TRUVADA [Suspect]
     Indication: HIV INFECTION
     Route: 048
     Dates: start: 20080205, end: 20080228
  8. ASPIRIN [Concomitant]

REACTIONS (1)
  - STEVENS-JOHNSON SYNDROME [None]
